FAERS Safety Report 5810446-2 (Version None)
Quarter: 2008Q3

REPORT INFORMATION
  Report Type: 
  Country: None (occurrence: None)
  Receive Date: 20080715
  Receipt Date: 20080703
  Transmission Date: 20090109
  Serious: Yes (Hospitalization)
  Sender: FDA-Public Use
  Company Number: DK-PFIZER INC-2008051047

PATIENT
  Sex: Female
  Weight: 75 kg

DRUGS (5)
  1. GENOTROPIN [Suspect]
     Indication: HYPOPITUITARISM
     Dosage: DAILY DOSE:.6MG-FREQ:DAILY
     Route: 058
  2. HYDROKORTISON [Suspect]
  3. ELTROXIN [Concomitant]
  4. OMEPRAZOLE [Concomitant]
  5. DIDRONATE [Concomitant]
     Dosage: DAILY DOSE:200MG

REACTIONS (4)
  - ABDOMINAL PAIN UPPER [None]
  - DIZZINESS [None]
  - LOSS OF CONTROL OF LEGS [None]
  - VOMITING [None]
